FAERS Safety Report 16154236 (Version 4)
Quarter: 2019Q2

REPORT INFORMATION
  Report Type: Spontaneous
  Country: US (occurrence: US)
  Receive Date: 20190403
  Receipt Date: 20190530
  Transmission Date: 20190711
  Serious: Yes (Other)
  Sender: FDA-Public Use
  Company Number: US-JNJFOC-20190338964

PATIENT
  Age: 68 Year
  Sex: Female

DRUGS (6)
  1. PREDNISONE. [Suspect]
     Active Substance: PREDNISONE
     Indication: PRODUCT USED FOR UNKNOWN INDICATION
     Route: 065
  2. TYLENOL [Suspect]
     Active Substance: ACETAMINOPHEN
     Route: 065
  3. TYLENOL [Suspect]
     Active Substance: ACETAMINOPHEN
     Indication: PRODUCT USED FOR UNKNOWN INDICATION
     Route: 065
  4. HUMIRA [Suspect]
     Active Substance: ADALIMUMAB
     Indication: RHEUMATOID ARTHRITIS
     Route: 058
     Dates: start: 20181108
  5. HUMIRA [Suspect]
     Active Substance: ADALIMUMAB
     Indication: RHEUMATOID ARTHRITIS
     Route: 058
     Dates: start: 20190214
  6. METHOTREXATE. [Concomitant]
     Active Substance: METHOTREXATE
     Indication: PRODUCT USED FOR UNKNOWN INDICATION
     Route: 065

REACTIONS (25)
  - Middle insomnia [Recovering/Resolving]
  - Mobility decreased [Unknown]
  - Feeling hot [Unknown]
  - Inner ear disorder [Unknown]
  - Weight decreased [Unknown]
  - Synovial cyst [Unknown]
  - Limb mass [Unknown]
  - Nasopharyngitis [Unknown]
  - Pain in extremity [Unknown]
  - Abdominal pain [Unknown]
  - Rheumatoid arthritis [Recovering/Resolving]
  - Inflammation [Unknown]
  - Gout [Unknown]
  - Musculoskeletal pain [Recovered/Resolved]
  - Hepatic enzyme increased [Unknown]
  - Abdominal injury [Unknown]
  - Pneumonia [Not Recovered/Not Resolved]
  - Dehydration [Unknown]
  - Hypoaesthesia [Unknown]
  - Abdominal pain upper [Unknown]
  - Atrial fibrillation [Not Recovered/Not Resolved]
  - Arrhythmia [Unknown]
  - Food intolerance [Unknown]
  - Joint warmth [Unknown]
  - Nephropathy [Unknown]

NARRATIVE: CASE EVENT DATE: 20190221
